FAERS Safety Report 5547625-8 (Version None)
Quarter: 2007Q4

REPORT INFORMATION
  Report Type: 
  Country: None (occurrence: None)
  Receive Date: 20071211
  Receipt Date: 20071204
  Transmission Date: 20080405
  Serious: Yes (Hospitalization)
  Sender: FDA-Public Use
  Company Number: NL-BOEHRINGER INGELHEIM PHARMACEUTICALS, INC.-2007-NL-00508NL

PATIENT
  Sex: Male
  Weight: 75 kg

DRUGS (6)
  1. PERSANTIN [Suspect]
     Indication: TRANSIENT ISCHAEMIC ATTACK
     Route: 048
     Dates: start: 20070907
  2. ATEROSOL [Concomitant]
     Route: 048
  3. TILDIEM XR [Concomitant]
     Route: 048
  4. ACETYLCARDIO [Concomitant]
     Route: 048
  5. ISOSORBIDEMONONITRAAT [Concomitant]
     Route: 048
  6. CRESTOR [Concomitant]
     Route: 048
     Dates: start: 20070904

REACTIONS (1)
  - OEDEMA PERIPHERAL [None]
